FAERS Safety Report 17965034 (Version 9)
Quarter: 2021Q3

REPORT INFORMATION
  Report Type: Spontaneous
  Country: FR (occurrence: FR)
  Receive Date: 20200630
  Receipt Date: 20210915
  Transmission Date: 20211014
  Serious: Yes (Hospitalization, Other)
  Sender: FDA-Public Use
  Company Number: NVSC2020FR150482

PATIENT
  Age: 65 Year
  Sex: Male

DRUGS (26)
  1. VORICONAZOLE. [Suspect]
     Active Substance: VORICONAZOLE
     Dosage: 12 MG/KG, QD (6 MG/KG, BID 12 H, ON FIRST DAY)
     Route: 042
  2. PREDNISONE. [Suspect]
     Active Substance: PREDNISONE
     Indication: HEART TRANSPLANT
     Dosage: 12.5 MG, QD
     Route: 065
  3. MYCOPHENOLATE MOFETIL. [Suspect]
     Active Substance: MYCOPHENOLATE MOFETIL
     Indication: HEART TRANSPLANT REJECTION
     Dosage: UNK UNK, 500 BID
     Route: 065
  4. VORICONAZOLE. [Suspect]
     Active Substance: VORICONAZOLE
     Indication: MEDIASTINITIS
     Dosage: 12 MG/KG, QD 6 MG/KG (BID)
     Route: 042
  5. PIPERACILIN/TAZOBACTAM [Concomitant]
     Active Substance: PIPERACILLIN SODIUM\TAZOBACTAM SODIUM
     Dosage: 200 MG/KG, TID
     Route: 065
  6. VORICONAZOLE. [Suspect]
     Active Substance: VORICONAZOLE
     Dosage: 8 MG/KG, QD, 4 MG/KG, BID
     Route: 042
  7. ISAVUCONAZOLE [Suspect]
     Active Substance: ISAVUCONAZOLE
     Indication: DISSEMINATED ASPERGILLOSIS
     Dosage: 200 MG, QD ((INITIAL LOADING DOSE THREE TIMES FOR 48 HRS)
     Route: 042
  8. PIPERACILIN/TAZOBACTAM [Concomitant]
     Active Substance: PIPERACILLIN SODIUM\TAZOBACTAM SODIUM
     Dosage: 0.5 G (TAZOBACTAM SODIUM)
     Route: 065
  9. DAPTOMYCIN. [Concomitant]
     Active Substance: DAPTOMYCIN
     Indication: DRUG THERAPY
     Dosage: 2800 MG, QD (11.5 MG/KG)
     Route: 065
  10. AMPHOTERICIN B. [Concomitant]
     Active Substance: AMPHOTERICIN B
     Indication: DISSEMINATED ASPERGILLOSIS
     Dosage: 3 MG/KG, UNKNOWN
     Route: 065
  11. VORICONAZOLE. [Suspect]
     Active Substance: VORICONAZOLE
     Indication: OSTEOMYELITIS FUNGAL
     Dosage: 4 MG/KG, Q12H
     Route: 065
  12. VORICONAZOLE. [Suspect]
     Active Substance: VORICONAZOLE
     Indication: BRONCHOPULMONARY ASPERGILLOSIS
     Dosage: 4 MG/KG, QOD
     Route: 042
  13. ISAVUCONAZOLE [Suspect]
     Active Substance: ISAVUCONAZOLE
     Indication: MEDIASTINITIS
  14. PIPERACILIN/TAZOBACTAM [Concomitant]
     Active Substance: PIPERACILLIN SODIUM\TAZOBACTAM SODIUM
     Indication: DRUG THERAPY
     Dosage: 4 G (PIPERACILLIN SODIUM )
     Route: 065
  15. VORICONAZOLE. [Suspect]
     Active Substance: VORICONAZOLE
     Indication: ASPERGILLUS INFECTION
     Dosage: UNK UNK, BID
     Route: 048
  16. VORICONAZOLE. [Suspect]
     Active Substance: VORICONAZOLE
     Indication: DISSEMINATED ASPERGILLOSIS
     Dosage: BID (6 MG/KG/12 H THE FIRST DAY THEN 4 MG/KG/12 H FOR 7 DAYS
     Route: 042
  17. PREDNISONE. [Suspect]
     Active Substance: PREDNISONE
     Indication: HEART TRANSPLANT REJECTION
  18. MYCOPHENOLATE MOFETIL. [Suspect]
     Active Substance: MYCOPHENOLATE MOFETIL
     Indication: HEART TRANSPLANT
     Dosage: 1000 MG, QD (500 MG, BID)
     Route: 065
     Dates: start: 2017
  19. VORICONAZOLE. [Suspect]
     Active Substance: VORICONAZOLE
     Dosage: 8 MG/KG, QD (4MG/KG, BID
     Route: 065
  20. TACROLIMUS. [Suspect]
     Active Substance: TACROLIMUS
     Indication: IMMUNOSUPPRESSANT DRUG THERAPY
  21. MYCOPHENOLATE MOFETIL. [Suspect]
     Active Substance: MYCOPHENOLATE MOFETIL
     Indication: IMMUNOSUPPRESSANT DRUG THERAPY
  22. VORICONAZOLE. [Suspect]
     Active Substance: VORICONAZOLE
     Dosage: 6 MG/KG, QOD
     Route: 042
  23. TACROLIMUS. [Suspect]
     Active Substance: TACROLIMUS
     Indication: HEART TRANSPLANT
     Dosage: 0.15 MG/KG (WITH RESIDUAL TARGET BETWEEN 8 AND 10 NG/ML)
     Route: 065
     Dates: start: 2017
  24. TACROLIMUS. [Suspect]
     Active Substance: TACROLIMUS
     Indication: HEART TRANSPLANT REJECTION
     Dosage: 0.15 MG/KG, UNKNOWN
     Route: 065
  25. PREDNISONE. [Suspect]
     Active Substance: PREDNISONE
     Indication: IMMUNOSUPPRESSANT DRUG THERAPY
     Dosage: 12.5 MG, QD
     Route: 065
     Dates: start: 2017
  26. ISAVUCONAZOLE [Suspect]
     Active Substance: ISAVUCONAZOLE
     Indication: OSTEOMYELITIS FUNGAL
     Dosage: UNK
     Route: 065

REACTIONS (16)
  - Neuropathy peripheral [Recovered/Resolved]
  - Paraesthesia [Recovered/Resolved]
  - Off label use [Unknown]
  - Osteomyelitis fungal [Recovered/Resolved]
  - Photosensitivity reaction [Recovered/Resolved]
  - Soft tissue infection [Recovered/Resolved]
  - Neurotoxicity [Recovered/Resolved]
  - Mediastinitis [Recovered/Resolved]
  - Peripheral sensory neuropathy [Recovered/Resolved]
  - Acute kidney injury [Recovered/Resolved]
  - Skin infection [Recovered/Resolved]
  - Peripheral sensorimotor neuropathy [Recovered/Resolved]
  - Skin toxicity [Recovered/Resolved]
  - Nervous system disorder [Recovered/Resolved]
  - Disseminated aspergillosis [Recovered/Resolved]
  - Aspergillus infection [Recovered/Resolved]
